FAERS Safety Report 24829484 (Version 1)
Quarter: 2025Q1

REPORT INFORMATION
  Report Type: Spontaneous
  Country: JP (occurrence: JP)
  Receive Date: 20250110
  Receipt Date: 20250110
  Transmission Date: 20250409
  Serious: Yes (Other)
  Sender: ALKEM
  Company Number: JP-ALKEM LABORATORIES LIMITED-JP-ALKEM-2024-22588

PATIENT
  Age: 71 Year
  Sex: Female

DRUGS (2)
  1. CAPECITABINE [Suspect]
     Active Substance: CAPECITABINE
     Indication: Colorectal cancer
     Route: 065
  2. PILSICAINIDE [Concomitant]
     Active Substance: PILSICAINIDE
     Indication: Arrhythmia
     Dosage: 150 MILLIGRAM, TID
     Route: 048

REACTIONS (3)
  - Mesenteric vein thrombosis [Recovered/Resolved]
  - Diarrhoea [Unknown]
  - Decreased appetite [Unknown]
